FAERS Safety Report 7049450-8 (Version None)
Quarter: 2010Q4

REPORT INFORMATION
  Report Type: 
  Country: None (occurrence: None)
  Receive Date: 20101007
  Receipt Date: 20100927
  Transmission Date: 20110411
  Serious: Yes (Hospitalization)
  Sender: FDA-Public Use
  Company Number: 2010-3263

PATIENT
  Age: 32 Year
  Sex: Female
  Weight: 56 kg

DRUGS (3)
  1. APOKYN [Suspect]
     Indication: DYSTONIA
     Dosage: (0.2 ML, 0.1 ML)
     Dates: start: 20100921, end: 20100901
  2. APOKYN [Suspect]
     Indication: DYSTONIA
     Dosage: (0.2 ML, 0.1 ML)
     Dates: start: 20100922, end: 20100925
  3. TIGAN [Concomitant]

REACTIONS (2)
  - DYSTONIA [None]
  - INJECTION SITE PAIN [None]
